FAERS Safety Report 9912055 (Version 2)
Quarter: 2014Q1

REPORT INFORMATION
  Report Type: Spontaneous
  Country: US (occurrence: US)
  Receive Date: 20140219
  Receipt Date: 20140219
  Transmission Date: 20141002
  Serious: Yes (Other)
  Sender: FDA-Public Use
  Company Number: US-GE HEALTHCARE MEDICAL DIAGNOSTICS-OSCN-PR-0905S-0224

PATIENT
  Age: 44 Year
  Sex: Female

DRUGS (3)
  1. OMNISCAN [Suspect]
     Indication: PRODUCT USED FOR UNKNOWN INDICATION
     Dosage: UNSPECIFIED
     Dates: start: 20051229, end: 20051229
  2. OMNISCAN [Suspect]
     Dosage: UNSPECIFIED
     Dates: start: 20060123, end: 20060123
  3. OMNISCAN [Suspect]
     Dosage: UNSPECIFIED
     Dates: start: 20060307, end: 20060307

REACTIONS (1)
  - Nephrogenic systemic fibrosis [Not Recovered/Not Resolved]
